FAERS Safety Report 4933523-7 (Version None)
Quarter: 2006Q1

REPORT INFORMATION
  Report Type: 
  Country: None (occurrence: None)
  Receive Date: 20060301
  Receipt Date: 20060220
  Transmission Date: 20060701
  Serious: Yes (Hospitalization, Other)
  Sender: FDA-Public Use
  Company Number: 13413

PATIENT
  Age: 64 Year
  Sex: Male

DRUGS (10)
  1. AMIODARONE [Suspect]
     Dosage: 400 MG DAILY
  2. RAMIPRIL [Concomitant]
  3. CARVEDILOL [Concomitant]
  4. ISOSORBIDE DINITRATE [Concomitant]
  5. FUROSEMIDE [Concomitant]
  6. DIGOXIN [Concomitant]
  7. SIMVASTATIN [Concomitant]
  8. OMEPRAZOLE [Concomitant]
  9. SPIRONOLACTONE [Concomitant]
  10. WARFARIN SODIUM [Concomitant]

REACTIONS (19)
  - AREFLEXIA [None]
  - ASTHENIA [None]
  - BODY TEMPERATURE INCREASED [None]
  - COUGH [None]
  - CREPITATIONS [None]
  - DRUG TOXICITY [None]
  - DYSPNOEA [None]
  - GALLOP RHYTHM PRESENT [None]
  - LUNG NEOPLASM [None]
  - LYMPHADENOPATHY [None]
  - MUSCLE ATROPHY [None]
  - NEOPLASM MALIGNANT [None]
  - PLEURITIC PAIN [None]
  - PO2 DECREASED [None]
  - POLYNEUROPATHY [None]
  - PULMONARY MASS [None]
  - RESPIRATORY RATE INCREASED [None]
  - RESTRICTIVE PULMONARY DISEASE [None]
  - WEIGHT DECREASED [None]
